FAERS Safety Report 13288648 (Version 5)
Quarter: 2019Q4

REPORT INFORMATION
  Report Type: Spontaneous
  Country: US (occurrence: US)
  Receive Date: 20170302
  Receipt Date: 20191014
  Transmission Date: 20200122
  Serious: Yes (Hospitalization, Other)
  Sender: FDA-Public Use
  Company Number: US-PFIZER INC-2017086472

PATIENT
  Age: 80 Year
  Sex: Female

DRUGS (2)
  1. XELJANZ XR [Suspect]
     Active Substance: TOFACITINIB CITRATE
     Indication: RHEUMATOID ARTHRITIS
     Dosage: 11 MG, DAILY
     Route: 048
     Dates: start: 20161101
  2. XELJANZ XR [Suspect]
     Active Substance: TOFACITINIB CITRATE
     Dosage: UNK

REACTIONS (18)
  - Dyspnoea [Recovered/Resolved]
  - Cardiac failure congestive [Recovered/Resolved]
  - Disturbance in attention [Unknown]
  - Pain in extremity [Recovering/Resolving]
  - Blister [Unknown]
  - Rash [Unknown]
  - Dizziness [Unknown]
  - Product dose omission [Unknown]
  - Herpes zoster [Recovering/Resolving]
  - Chest pain [Recovering/Resolving]
  - Back pain [Recovering/Resolving]
  - Nervousness [Unknown]
  - Pain [Recovering/Resolving]
  - Musculoskeletal pain [Recovering/Resolving]
  - Fatigue [Unknown]
  - Malaise [Unknown]
  - Pneumonia [Recovered/Resolved]
  - Vertigo [Unknown]

NARRATIVE: CASE EVENT DATE: 2019
